FAERS Safety Report 4435300-2 (Version None)
Quarter: 2004Q3

REPORT INFORMATION
  Report Type: 
  Country: None (occurrence: None)
  Receive Date: 20040826
  Receipt Date: 20040826
  Transmission Date: 20050211
  Serious: Yes (Hospitalization)
  Sender: FDA-Public Use
  Company Number: F01200402422

PATIENT
  Age: 56 Year
  Sex: Male

DRUGS (5)
  1. OXALIPLATIN SOLUTION 130MG/M2 [Suspect]
     Indication: COLORECTAL CANCER METASTATIC
     Route: 042
  2. CAPECITABINE TABLET 2000MG [Suspect]
     Dosage: 2000 MG TWICE A DAY PER ORAL FROM D1 TO D15
     Route: 048
     Dates: start: 20040712, end: 20040802
  3. VENTOLIN INHALERS (SALBUTAMOL) [Concomitant]
  4. BECOTIDE INHALER (BECLOMETASONE DIPROPIONATE) [Concomitant]
  5. PREDNISOLONE [Concomitant]

REACTIONS (5)
  - DYSPNOEA [None]
  - HEART RATE INCREASED [None]
  - OXYGEN SATURATION DECREASED [None]
  - PO2 DECREASED [None]
  - RESPIRATORY RATE INCREASED [None]
